FAERS Safety Report 8474758-9 (Version None)
Quarter: 2012Q2

REPORT INFORMATION
  Report Type: 
  Country: None (occurrence: None)
  Receive Date: 20120622
  Receipt Date: 20120618
  Transmission Date: 20120825
  Serious: Yes (Other)
  Sender: FDA-Public Use
  Company Number: AUR-APL-2012-02557

PATIENT
  Age: 10 Year
  Sex: Male

DRUGS (1)
  1. RISPERIDONE [Suspect]
     Indication: AGGRESSION
     Dosage: (1.25 MG, 1 D), ORAL
     Route: 048
     Dates: start: 20120405, end: 20120427

REACTIONS (2)
  - CONDUCTION DISORDER [None]
  - ASTHENIA [None]
